FAERS Safety Report 10251107 (Version 1)
Quarter: 2014Q2

REPORT INFORMATION
  Report Type: Spontaneous
  Country: US (occurrence: US)
  Receive Date: 20140620
  Receipt Date: 20140620
  Transmission Date: 20141212
  Serious: Yes (Hospitalization, Other)
  Sender: FDA-Public Use
  Company Number: US-TEVA-486915USA

PATIENT
  Age: 70 Year
  Sex: Male
  Weight: 97.61 kg

DRUGS (4)
  1. PROVIGIL [Suspect]
     Indication: POOR QUALITY SLEEP
     Dosage: 400 MILLIGRAM DAILY;
     Dates: end: 20140604
  2. PROVIGIL [Suspect]
     Indication: ASTHENIA
     Dates: start: 20140606
  3. NUVIGIL [Suspect]
     Dates: start: 20140605, end: 20140605
  4. ATIVAN [Concomitant]
     Indication: PANIC ATTACK

REACTIONS (10)
  - Knee arthroplasty [Unknown]
  - Off label use [Unknown]
  - Feeling hot [Unknown]
  - Pruritus generalised [Unknown]
  - Skin plaque [Unknown]
  - Itching scar [Unknown]
  - Dyspnoea [Unknown]
  - Arthralgia [Unknown]
  - Arthralgia [Unknown]
  - Arthralgia [Unknown]
